FAERS Safety Report 4909309-6 (Version None)
Quarter: 2006Q1

REPORT INFORMATION
  Report Type: 
  Country: None (occurrence: None)
  Receive Date: 20060210
  Receipt Date: 20060210
  Transmission Date: 20060701
  Serious: Yes (Hospitalization)
  Sender: FDA-Public Use
  Company Number: None

PATIENT
  Sex: Male
  Weight: 59.4212 kg

DRUGS (14)
  1. VALTREX [Suspect]
     Indication: HERPES ZOSTER
     Dosage: 1000MG TID X 7 DAYS PO
     Route: 048
     Dates: start: 20050923, end: 20050925
  2. CLONIDINE [Concomitant]
  3. LIPITOR [Concomitant]
  4. PREDNISONE [Concomitant]
  5. FLOMAX [Concomitant]
  6. PLAVIX [Concomitant]
  7. NORVASC [Concomitant]
  8. NEXIUM [Concomitant]
  9. COLACE [Concomitant]
  10. EFFEXOR [Concomitant]
  11. NEBULIZER IPRATROPIUM BROMIDE [Concomitant]
  12. ALBUTEROL SULATE [Concomitant]
  13. SPIRIVA [Concomitant]
  14. ACETAMINOPHEN AND CODEINE PHOSPHATE #3 [Concomitant]

REACTIONS (3)
  - CONFUSIONAL STATE [None]
  - DISORIENTATION [None]
  - MENTAL STATUS CHANGES [None]
